FAERS Safety Report 26179590 (Version 1)
Quarter: 2025Q4

REPORT INFORMATION
  Report Type: Spontaneous
  Country: US (occurrence: US)
  Receive Date: 20251219
  Receipt Date: 20251219
  Transmission Date: 20260118
  Serious: Yes (Other)
  Sender: ABBVIE
  Company Number: US-ABBVIE-6597908

PATIENT
  Sex: Male

DRUGS (1)
  1. LEXAPRO [Suspect]
     Active Substance: ESCITALOPRAM OXALATE
     Indication: Major depression
     Route: 048

REACTIONS (3)
  - Lung transplant [Unknown]
  - Gastrointestinal motility disorder [Unknown]
  - Constipation [Unknown]

NARRATIVE: CASE EVENT DATE: 20251201
